FAERS Safety Report 4399814-6 (Version None)
Quarter: 2004Q3

REPORT INFORMATION
  Report Type: 
  Country: None (occurrence: None)
  Receive Date: 20040714
  Receipt Date: 20040701
  Transmission Date: 20050211
  Serious: Yes (Hospitalization)
  Sender: FDA-Public Use
  Company Number: 2004043294

PATIENT
  Age: 72 Year
  Sex: Female
  Weight: 70 kg

DRUGS (5)
  1. NORVASC [Suspect]
     Indication: ANGINA PECTORIS
     Dosage: 10 MG (10 MG, 1 IN 1 D), ORAL
     Route: 048
     Dates: start: 20031101, end: 20040301
  2. FOSINOPRIL SODIUM [Concomitant]
  3. METOPROLOL (METOPROLOL) [Concomitant]
  4. SIMVASTATIN [Concomitant]
  5. SPIRONOLACTONE [Concomitant]

REACTIONS (2)
  - CORONARY ARTERY SURGERY [None]
  - OEDEMA PERIPHERAL [None]
